FAERS Safety Report 17361970 (Version 1)
Quarter: 2020Q1

REPORT INFORMATION
  Report Type: Spontaneous
  Country: BR (occurrence: BR)
  Receive Date: 20200203
  Receipt Date: 20200203
  Transmission Date: 20200409
  Serious: Yes (Other)
  Sender: FDA-Public Use
  Company Number: BR-PFIZER INC-2020045555

PATIENT
  Sex: Male

DRUGS (2)
  1. CHAMPIX [Suspect]
     Active Substance: VARENICLINE TARTRATE
     Indication: SMOKING CESSATION THERAPY
     Dosage: UNK
     Dates: start: 2016
  2. BUP [Concomitant]
     Active Substance: BUPROPION HYDROCHLORIDE
     Indication: SMOKING CESSATION THERAPY
     Dosage: UNK
     Dates: start: 2016

REACTIONS (7)
  - Drug ineffective [Unknown]
  - Nodule [Unknown]
  - Myocardial infarction [Unknown]
  - Infarction [Unknown]
  - Chromaturia [Unknown]
  - Pericarditis [Unknown]
  - Emphysema [Unknown]
